FAERS Safety Report 20524106 (Version 1)
Quarter: 2022Q1

REPORT INFORMATION
  Report Type: Spontaneous
  Country: US (occurrence: US)
  Receive Date: 20220228
  Receipt Date: 20220228
  Transmission Date: 20220424
  Serious: No
  Sender: FDA-Public Use
  Company Number: US-HRARD-2021000475

PATIENT
  Age: 29 Year
  Sex: Female

DRUGS (4)
  1. METYRAPONE [Suspect]
     Active Substance: METYRAPONE
     Dosage: 250 MG X 4 TIMES/DAY
     Route: 065
  2. KETOCONAZOLE [Concomitant]
     Active Substance: KETOCONAZOLE
     Dosage: 400 MG TID
  3. HYDROCORTISONE [Concomitant]
     Active Substance: HYDROCORTISONE
  4. HYDROCORTISONE [Concomitant]
     Active Substance: HYDROCORTISONE
     Dosage: 20 MG IN THE MORNING AND 10 MG IN THE EVENING AFTER TRANSSPHENOIDAL RESECTION

REACTIONS (1)
  - Off label use [Unknown]
